FAERS Safety Report 5479717-6 (Version None)
Quarter: 2007Q4

REPORT INFORMATION
  Report Type: 
  Country: None (occurrence: None)
  Receive Date: 20071008
  Receipt Date: 20070925
  Transmission Date: 20080405
  Serious: Yes (Hospitalization, Other)
  Sender: FDA-Public Use
  Company Number: US-RANBAXY-2007US-10262

PATIENT

DRUGS (2)
  1. VERAPAMIL [Suspect]
     Indication: TACHYCARDIA
     Dosage: 120 MG, QD
     Route: 048
     Dates: start: 19990601, end: 20061212
  2. VERAPAMIL [Suspect]
     Dosage: 240 MG, QD
     Route: 048
     Dates: start: 20061212

REACTIONS (2)
  - PREGNANCY [None]
  - TACHYCARDIA [None]
